FAERS Safety Report 19692898 (Version 1)
Quarter: 2021Q3

REPORT INFORMATION
  Report Type: Spontaneous
  Country: DE (occurrence: DE)
  Receive Date: 20210813
  Receipt Date: 20210813
  Transmission Date: 20211014
  Serious: Yes (Other)
  Sender: FDA-Public Use
  Company Number: PHHY2018DE130643

PATIENT
  Age: 50 Year
  Sex: Male

DRUGS (6)
  1. COSENTYX [Suspect]
     Active Substance: SECUKINUMAB
     Dosage: 150 MG, UNK (SIXTH INJECTION FOR THE FIRST TIME IN BELLY)
     Route: 065
     Dates: start: 20181011
  2. PREDNISOLONE. [Suspect]
     Active Substance: PREDNISOLONE
     Indication: UVEITIS
     Dosage: UNK, UNKNOWN
     Route: 065
  3. DICLOFENAC [Concomitant]
     Active Substance: DICLOFENAC
     Indication: PRODUCT USED FOR UNKNOWN INDICATION
     Dosage: UNK
     Route: 065
  4. COSENTYX [Suspect]
     Active Substance: SECUKINUMAB
     Dosage: UNK, Q2W
     Route: 065
  5. COSENTYX [Suspect]
     Active Substance: SECUKINUMAB
     Indication: ANKYLOSING SPONDYLITIS
     Dosage: 150 MG, UNKNOWN
     Route: 065
  6. PREDNISOLONE. [Suspect]
     Active Substance: PREDNISOLONE
     Dosage: UNK (EYE DROPS)
     Route: 065

REACTIONS (14)
  - Herpes zoster [Unknown]
  - Weight increased [Unknown]
  - Drug ineffective [Unknown]
  - Iritis [Unknown]
  - Pruritus [Unknown]
  - Infection [Unknown]
  - Periarthritis [Unknown]
  - Inappropriate schedule of product administration [Unknown]
  - Skin burning sensation [Unknown]
  - Staphylococcal infection [Recovering/Resolving]
  - Hair colour changes [Unknown]
  - Liver function test increased [Unknown]
  - Scratch [Unknown]
  - Fatigue [Unknown]

NARRATIVE: CASE EVENT DATE: 20181012
